FAERS Safety Report 11909953 (Version 1)
Quarter: 2016Q1

REPORT INFORMATION
  Report Type: Spontaneous
  Country: BR (occurrence: BR)
  Receive Date: 20160112
  Receipt Date: 20160112
  Transmission Date: 20160526
  Serious: Yes (Hospitalization, Other)
  Sender: FDA-Public Use
  Company Number: PHHY2016BR001100

PATIENT

DRUGS (6)
  1. SUTENT [Suspect]
     Active Substance: SUNITINIB MALATE
     Dosage: 1 DF, UNK (1 TABLET OF 50 MG)
     Route: 065
  2. SUTENT [Suspect]
     Active Substance: SUNITINIB MALATE
     Indication: METASTASES TO LUNG
     Dosage: 2 DF, QD (CYCLE 2X1)
     Route: 065
  3. SUTENT [Suspect]
     Active Substance: SUNITINIB MALATE
     Indication: CLEAR CELL RENAL CELL CARCINOMA
     Dosage: 4 DF, BID (CYCLE 4X2)
     Route: 065
     Dates: start: 201304
  4. AMLODIPINE BESILATE [Concomitant]
     Active Substance: AMLODIPINE BESYLATE
     Indication: HYPERTENSION
     Dosage: UNK
     Route: 065
  5. ZOMETA [Suspect]
     Active Substance: ZOLEDRONIC ACID
     Indication: BONE DISORDER
     Dosage: 1 DF, QMO (1 INJECTION A MONTH))
     Route: 065
     Dates: start: 201306, end: 2014
  6. SYNTHROID [Concomitant]
     Active Substance: LEVOTHYROXINE SODIUM
     Indication: THYROID DISORDER
     Dosage: UNK
     Route: 065

REACTIONS (16)
  - Genital pain [Not Recovered/Not Resolved]
  - Ageusia [Not Recovered/Not Resolved]
  - Oral discomfort [Not Recovered/Not Resolved]
  - Epistaxis [Not Recovered/Not Resolved]
  - Dizziness [Recovered/Resolved]
  - Bone loss [Not Recovered/Not Resolved]
  - Jaw fracture [Not Recovered/Not Resolved]
  - Dyspnoea [Not Recovered/Not Resolved]
  - Osteonecrosis of jaw [Not Recovered/Not Resolved]
  - Fatigue [Not Recovered/Not Resolved]
  - Product use issue [Unknown]
  - Cancer pain [Not Recovered/Not Resolved]
  - Oral pain [Not Recovered/Not Resolved]
  - Impaired healing [Not Recovered/Not Resolved]
  - Pain in extremity [Not Recovered/Not Resolved]
  - Skin exfoliation [Not Recovered/Not Resolved]

NARRATIVE: CASE EVENT DATE: 2014
